FAERS Safety Report 14020184 (Version 1)
Quarter: 2017Q3

REPORT INFORMATION
  Report Type: Spontaneous
  Country: US (occurrence: US)
  Receive Date: 20170928
  Receipt Date: 20170928
  Transmission Date: 20171128
  Serious: Yes (Other)
  Sender: FDA-Public Use
  Company Number: US-APOTEX-2017AP018835

PATIENT
  Age: 82 Year
  Sex: Male

DRUGS (1)
  1. CIPROFLOXACIN OPHTHALMIC SOLUTION USP [Suspect]
     Active Substance: CIPROFLOXACIN
     Indication: EYE SWELLING
     Dosage: UNK
     Route: 065

REACTIONS (1)
  - Drug ineffective [Unknown]
